FAERS Safety Report 10192627 (Version 1)
Quarter: 2014Q2

REPORT INFORMATION
  Report Type: Spontaneous
  Country: DE (occurrence: DE)
  Receive Date: 20140523
  Receipt Date: 20140523
  Transmission Date: 20141212
  Serious: Yes (Other)
  Sender: FDA-Public Use
  Company Number: DE-BRISTOL-MYERS SQUIBB COMPANY-20821443

PATIENT
  Sex: Female
  Weight: 3 kg

DRUGS (4)
  1. METFORMIN HCL [Suspect]
     Route: 064
     Dates: start: 20130324, end: 20131111
  2. CANDESARTAN [Suspect]
     Route: 064
     Dates: start: 20130324, end: 20131111
  3. METOPROLOL [Concomitant]
     Route: 064
     Dates: start: 20131111, end: 20140102
  4. FOLIC ACID [Concomitant]
     Route: 064
     Dates: start: 20131111, end: 20140102

REACTIONS (2)
  - Ventricular septal defect [Recovered/Resolved]
  - Foetal exposure during pregnancy [Recovered/Resolved]
